FAERS Safety Report 8932800 (Version 2)
Quarter: 2013Q3

REPORT INFORMATION
  Report Type: Spontaneous
  Country: US (occurrence: US)
  Receive Date: 20121129
  Receipt Date: 20130815
  Transmission Date: 20140515
  Serious: Yes (Hospitalization, Disabling)
  Sender: FDA-Public Use
  Company Number: US-ELI_LILLY_AND_COMPANY-US201211006295

PATIENT
  Age: 70 Year
  Sex: Female

DRUGS (2)
  1. HUMALOG LISPRO [Suspect]
     Indication: DIABETES MELLITUS
     Dosage: UNK UNK, OTHER
  2. HUMALOG LISPRO [Suspect]

REACTIONS (3)
  - Abasia [Unknown]
  - Glaucoma [Unknown]
  - Cataract [Unknown]
